FAERS Safety Report 7632332-8 (Version None)
Quarter: 2011Q3

REPORT INFORMATION
  Report Type: 
  Country: None (occurrence: None)
  Receive Date: 20110725
  Receipt Date: 20100803
  Transmission Date: 20111222
  Serious: No
  Sender: FDA-Public Use
  Company Number: US-BRISTOL-MYERS SQUIBB COMPANY-15223787

PATIENT
  Age: 61 Year
  Sex: Male

DRUGS (1)
  1. COUMADIN [Suspect]
     Indication: AORTIC VALVE REPLACEMENT
     Dosage: 5 MG 2 TIMES WEEKLY
     Dates: start: 19980101

REACTIONS (1)
  - INTERNATIONAL NORMALISED RATIO INCREASED [None]
